FAERS Safety Report 23690334 (Version 1)
Quarter: 2024Q2

REPORT INFORMATION
  Report Type: Spontaneous
  Country: US (occurrence: US)
  Receive Date: 20240401
  Receipt Date: 20240401
  Transmission Date: 20240716
  Serious: No
  Sender: FDA-Public Use
  Company Number: US-CIPLA LTD.-2024US00140

PATIENT

DRUGS (4)
  1. LANREOTIDE ACETATE [Suspect]
     Active Substance: LANREOTIDE ACETATE
     Indication: Neuroendocrine carcinoma
     Dosage: UNK (ONE INJECTION IN EVERY MONTH IN HIP)
     Route: 051
     Dates: start: 2020
  2. LANREOTIDE ACETATE [Suspect]
     Active Substance: LANREOTIDE ACETATE
     Dosage: UNK (ONE INJECTION IN EVERY MONTH IN HIP)
     Route: 051
     Dates: start: 202310
  3. LANREOTIDE ACETATE [Suspect]
     Active Substance: LANREOTIDE ACETATE
     Dosage: UNK (ONE INJECTION IN EVERY MONTH IN HIP)
     Route: 051
     Dates: start: 20231128
  4. LANREOTIDE ACETATE [Suspect]
     Active Substance: LANREOTIDE ACETATE
     Dosage: UNK (ONE INJECTION IN EVERY MONTH IN HIP)
     Route: 051
     Dates: start: 20231228

REACTIONS (6)
  - Pain in extremity [Not Recovered/Not Resolved]
  - Needle issue [Unknown]
  - Product physical consistency issue [Unknown]
  - Back pain [Not Recovered/Not Resolved]
  - Injection site pain [Not Recovered/Not Resolved]
  - Injection site swelling [Not Recovered/Not Resolved]

NARRATIVE: CASE EVENT DATE: 20230101
